FAERS Safety Report 5948321-5 (Version None)
Quarter: 2008Q4

REPORT INFORMATION
  Report Type: 
  Country: None (occurrence: None)
  Receive Date: 20081110
  Receipt Date: 20081110
  Transmission Date: 20090506
  Serious: No
  Sender: FDA-Public Use
  Company Number: None

PATIENT
  Age: 40 Year
  Sex: Female
  Weight: 83.0083 kg

DRUGS (1)
  1. JANUVIA [Suspect]
     Indication: TYPE 2 DIABETES MELLITUS
     Dosage: 100 MG DAILY PO
     Route: 048
     Dates: start: 20081104, end: 20081109

REACTIONS (5)
  - ARTHRALGIA [None]
  - HEPATIC PAIN [None]
  - NASAL CONGESTION [None]
  - POSTNASAL DRIP [None]
  - RHINORRHOEA [None]
